FAERS Safety Report 20419362 (Version 2)
Quarter: 2022Q1

REPORT INFORMATION
  Report Type: Spontaneous
  Country: US (occurrence: US)
  Receive Date: 20220203
  Receipt Date: 20220222
  Transmission Date: 20220423
  Serious: No
  Sender: FDA-Public Use
  Company Number: US-AIMMUNE THERAPEUTICS, INC.-2022AIMT00076

PATIENT

DRUGS (7)
  1. PALFORZIA [Suspect]
     Active Substance: PEANUT
     Indication: Food allergy
     Dosage: 0.5 - 1 MG, ONCE
     Route: 048
     Dates: start: 20211216
  2. PALFORZIA [Suspect]
     Active Substance: PEANUT
     Dosage: 1 MG, 1X/DAY
     Route: 048
     Dates: start: 20211217, end: 20211229
  3. PALFORZIA [Suspect]
     Active Substance: PEANUT
     Dosage: 2 MG, 1X/DAY
     Route: 048
     Dates: start: 20211230, end: 20220126
  4. PALFORZIA [Suspect]
     Active Substance: PEANUT
     Dosage: 3 MG, 1X/DAY
     Route: 048
     Dates: start: 20220127
  5. AMOXICILLIN TRIHYDRATE [Concomitant]
     Active Substance: AMOXICILLIN
     Indication: Nasal congestion
  6. AMOXICILLIN TRIHYDRATE [Concomitant]
     Active Substance: AMOXICILLIN
     Indication: Cough
  7. AMOXICILLIN TRIHYDRATE [Concomitant]
     Active Substance: AMOXICILLIN
     Indication: Pharyngitis streptococcal

REACTIONS (2)
  - Drug titration error [Recovered/Resolved]
  - Drug titration error [Recovered/Resolved]

NARRATIVE: CASE EVENT DATE: 20211216
